FAERS Safety Report 11038669 (Version 1)
Quarter: 2015Q2

REPORT INFORMATION
  Report Type: Spontaneous
  Country: US (occurrence: US)
  Receive Date: 20150416
  Receipt Date: 20150416
  Transmission Date: 20150821
  Serious: Yes (Other)
  Sender: FDA-Public Use
  Company Number: US-ENDO PHARMACEUTICALS INC.-201504042

PATIENT
  Sex: Male

DRUGS (5)
  1. ANDRODERM [Suspect]
     Active Substance: TESTOSTERONE
  2. FORTESTA [Suspect]
     Active Substance: TESTOSTERONE
     Route: 061
  3. ANDROGEL [Suspect]
     Active Substance: TESTOSTERONE
     Route: 061
  4. TESTIM [Suspect]
     Active Substance: TESTOSTERONE
     Route: 062
  5. AXIRON [Suspect]
     Active Substance: TESTOSTERONE

REACTIONS (3)
  - Acute myocardial infarction [Unknown]
  - Coronary artery disease [Unknown]
  - Arteriosclerosis coronary artery [Unknown]

NARRATIVE: CASE EVENT DATE: 20110410
